FAERS Safety Report 10334933 (Version 1)
Quarter: 2014Q3

REPORT INFORMATION
  Report Type: Spontaneous
  Country: IL (occurrence: IL)
  Receive Date: 20140723
  Receipt Date: 20140723
  Transmission Date: 20150326
  Serious: Yes (Congenital Anomaly)
  Sender: FDA-Public Use
  Company Number: PHHY2014IL088829

PATIENT
  Sex: Male

DRUGS (2)
  1. CARBAMAZEPINE. [Suspect]
     Active Substance: CARBAMAZEPINE
     Dosage: (MATERNAL DOSE: 200 MG/DAY)
     Route: 064
  2. DULOXETINE [Suspect]
     Active Substance: DULOXETINE
     Dosage: (MATERNAL DOSE: 60 MG/DAY)
     Route: 064

REACTIONS (2)
  - Foetal exposure during pregnancy [Unknown]
  - Mosaicism [Unknown]
